FAERS Safety Report 23223032 (Version 6)
Quarter: 2024Q3

REPORT INFORMATION
  Report Type: Spontaneous
  Country: JP (occurrence: None)
  Receive Date: 20231123
  Receipt Date: 20240729
  Transmission Date: 20241017
  Serious: Yes (Death, Life-Threatening, Other)
  Sender: ASTRAZENECA
  Company Number: 2023A262046

PATIENT
  Age: 80 Year
  Sex: Male
  Weight: 54 kg

DRUGS (13)
  1. ONDEXXYA [Suspect]
     Active Substance: ANDEXANET ALFA
     Indication: Cerebral haemorrhage
     Dosage: 880MG; 400 MG WAS INTRAVENOUSLY GIVEN AT 30 MG/MIN FOLLOWED BY 480 MG AT 4 MG IN 2 HOURS
     Route: 042
     Dates: start: 20230614, end: 20230614
  2. XARELTO [Concomitant]
     Active Substance: RIVAROXABAN
     Indication: Atrial fibrillation
     Dosage: DOSE UNKNOWN
     Route: 048
  3. XARELTO [Concomitant]
     Active Substance: RIVAROXABAN
     Indication: Atrial fibrillation
     Dosage: DOSE UNKNOWN
  4. OMEPRAZOLE [Concomitant]
     Active Substance: OMEPRAZOLE
     Dosage: 20.0MG UNKNOWN
     Route: 042
     Dates: start: 20230614, end: 20230614
  5. FOSPHENYTOIN SODIUM [Concomitant]
     Active Substance: FOSPHENYTOIN SODIUM
     Route: 041
     Dates: start: 20230614, end: 20230614
  6. ATROPINE [Concomitant]
     Active Substance: ATROPINE
     Dosage: 1 IU
     Route: 042
     Dates: start: 20230614, end: 20230614
  7. FENTANYL [Concomitant]
     Active Substance: FENTANYL\FENTANYL CITRATE
     Route: 041
     Dates: start: 20230614, end: 20230626
  8. MILLISROL [Concomitant]
     Dosage: 25.0MG UNKNOWN
     Route: 042
     Dates: start: 20230615, end: 20230618
  9. DORMICUM [Concomitant]
     Dosage: 10.0MG UNKNOWN
     Route: 041
     Dates: start: 20230615, end: 20230624
  10. ALPROSTADIL ALFADEX [Concomitant]
     Active Substance: ALPROSTADIL ALFADEX
     Dosage: 20.0UG UNKNOWN
     Route: 041
     Dates: start: 20230615, end: 20230617
  11. NEUART [Concomitant]
     Active Substance: ANTITHROMBIN III HUMAN
     Dosage: 1500 IU UNKNOWN
     Route: 041
     Dates: start: 20230616, end: 20230616
  12. DOPAMINE [Concomitant]
     Active Substance: DOPAMINE HYDROCHLORIDE
     Dosage: 600.0MG UNKNOWN
     Route: 041
  13. PRASUGREL HYDROCHLORIDE [Concomitant]
     Active Substance: PRASUGREL HYDROCHLORIDE
     Route: 041
     Dates: start: 20230615, end: 20230714

REACTIONS (11)
  - Cardiac failure congestive [Fatal]
  - Ventricular fibrillation [Recovered/Resolved]
  - Acute myocardial infarction [Fatal]
  - Seizure [Recovering/Resolving]
  - Septic shock [Unknown]
  - Necrosis ischaemic [Unknown]
  - Atrioventricular block complete [Unknown]
  - Peripheral artery occlusion [Unknown]
  - Iliac artery occlusion [Unknown]
  - Peripheral artery occlusion [Unknown]
  - Staphylococcal infection [Unknown]

NARRATIVE: CASE EVENT DATE: 20230101
